FAERS Safety Report 11638534 (Version 1)
Quarter: 2015Q4

REPORT INFORMATION
  Report Type: Spontaneous
  Country: CN (occurrence: CN)
  Receive Date: 20151016
  Receipt Date: 20151016
  Transmission Date: 20160304
  Serious: Yes (Hospitalization, Other)
  Sender: FDA-Public Use
  Company Number: CN-GILEAD-2015-0177103

PATIENT
  Age: 61 Year
  Sex: Female

DRUGS (1)
  1. HEPSERA [Suspect]
     Active Substance: ADEFOVIR DIPIVOXIL
     Indication: CHRONIC HEPATITIS B
     Dosage: 10 MG, QD
     Route: 065

REACTIONS (17)
  - Muscular weakness [Recovered/Resolved]
  - Femoral neck fracture [Unknown]
  - Unevaluable event [Recovered/Resolved]
  - Hip deformity [Unknown]
  - Abnormal faeces [Recovered/Resolved]
  - Hypertonic bladder [Recovered/Resolved]
  - Tenderness [Recovered/Resolved]
  - Arthralgia [Recovered/Resolved]
  - Blood glucose increased [Recovered/Resolved]
  - Osteoporosis [Recovered/Resolved]
  - Patellofemoral pain syndrome [Recovered/Resolved]
  - Pain [Recovered/Resolved]
  - Body height decreased [Unknown]
  - Poor quality sleep [Recovered/Resolved]
  - Dysstasia [Recovered/Resolved]
  - Hypophosphataemia [Recovered/Resolved]
  - Osteomalacia [Recovered/Resolved]

NARRATIVE: CASE EVENT DATE: 2012
